FAERS Safety Report 14170505 (Version 1)
Quarter: 2017Q4

REPORT INFORMATION
  Report Type: Spontaneous
  Country: US (occurrence: None)
  Receive Date: 20171108
  Receipt Date: 20171108
  Transmission Date: 20180321
  Serious: No
  Sender: FDA-Public Use
  Company Number: None

PATIENT
  Age: 70 Year
  Sex: Female
  Weight: 58.97 kg

DRUGS (5)
  1. VITAMIN B12 [Concomitant]
     Active Substance: CYANOCOBALAMIN
  2. PRIMIDONE. [Suspect]
     Active Substance: PRIMIDONE
     Indication: TREMOR
     Dosage: 1 PILL EVENING BY MOUTH
     Route: 048
     Dates: start: 20170926, end: 20170927
  3. PRIMIDONE. [Suspect]
     Active Substance: PRIMIDONE
     Indication: PARKINSON^S DISEASE
     Dosage: 1 PILL EVENING BY MOUTH
     Route: 048
     Dates: start: 20170926, end: 20170927
  4. VITAMIN D3 [Concomitant]
     Active Substance: CHOLECALCIFEROL
  5. TERMERIC [Concomitant]

REACTIONS (5)
  - Photophobia [None]
  - Headache [None]
  - Somnolence [None]
  - Feeling abnormal [None]
  - Nausea [None]

NARRATIVE: CASE EVENT DATE: 20170927
